FAERS Safety Report 8589518 (Version 19)
Quarter: 2015Q2

REPORT INFORMATION
  Report Type: Report from Study
  Country: SE (occurrence: SE)
  Receive Date: 20120531
  Receipt Date: 20150522
  Transmission Date: 20150821
  Serious: Yes (Hospitalization)
  Sender: FDA-Public Use
  Company Number: SE-ROCHE-1072086

PATIENT
  Age: 45 Year
  Sex: Female
  Weight: 53 kg

DRUGS (14)
  1. VEMURAFENIB [Suspect]
     Active Substance: VEMURAFENIB
     Dosage: 960 MG ONE IN AM AND ONE IN PM
     Route: 048
     Dates: start: 20111116, end: 20111124
  2. VEMURAFENIB [Suspect]
     Active Substance: VEMURAFENIB
     Dosage: 960 MG ONE IN AM AND ONE IN PM
     Route: 048
     Dates: start: 20120208, end: 20120401
  3. VEMURAFENIB [Suspect]
     Active Substance: VEMURAFENIB
     Dosage: LAST DOSE PRIOR TO SAE: 10/MAY/2012, 960 MG ONE IN AM AND ONE IN PM
     Route: 048
     Dates: start: 20120501, end: 20120514
  4. VEMURAFENIB [Suspect]
     Active Substance: VEMURAFENIB
     Indication: MALIGNANT MELANOMA
     Dosage: DATE OF LAST DOSE PRIOR TO ADVERSE EVENT: 14/MAY/2012
     Route: 048
     Dates: start: 20111214, end: 20120514
  5. VEMURAFENIB [Suspect]
     Active Substance: VEMURAFENIB
     Dosage: DATE OF LAST DOSE PRIOR TO ADVERSE EVENT: 13/DEC/2011
     Route: 048
     Dates: start: 20111013
  6. ZOPICLONE [Concomitant]
     Active Substance: ZOPICLONE
     Route: 065
     Dates: start: 20111123
  7. CLEMASTIN [Concomitant]
     Active Substance: CLEMASTINE
     Route: 065
     Dates: start: 20111023
  8. MILDISON [Concomitant]
     Active Substance: HYDROCORTISONE
     Route: 065
     Dates: start: 20111021
  9. PREDNISOLONE. [Concomitant]
     Active Substance: PREDNISOLONE
     Route: 065
     Dates: start: 20111027
  10. VEMURAFENIB [Suspect]
     Active Substance: VEMURAFENIB
     Dosage: 720 MG ONE IN AM AND ONE IN PM
     Route: 048
     Dates: start: 20111021, end: 20111115
  11. VEMURAFENIB [Suspect]
     Active Substance: VEMURAFENIB
     Dosage: 720 MG ONE IN AM AND ONE IN PM
     Route: 048
     Dates: start: 20111125, end: 20120207
  12. OMEPRAZOLE. [Concomitant]
     Active Substance: OMEPRAZOLE
     Route: 065
     Dates: start: 20111021
  13. VEMURAFENIB [Suspect]
     Active Substance: VEMURAFENIB
     Dosage: 720 MG ONE IN AM AND ONE IN PM
     Route: 048
     Dates: start: 20120402, end: 20120430
  14. ALVEDON [Concomitant]
     Active Substance: ACETAMINOPHEN
     Route: 065
     Dates: start: 20111018

REACTIONS (1)
  - Nephropathy toxic [Recovered/Resolved]

NARRATIVE: CASE EVENT DATE: 20120109
